FAERS Safety Report 16991228 (Version 2)
Quarter: 2020Q1

REPORT INFORMATION
  Report Type: Report from Study
  Country: NL (occurrence: NL)
  Receive Date: 20191104
  Receipt Date: 20200303
  Transmission Date: 20200409
  Serious: Yes (Hospitalization)
  Sender: FDA-Public Use
  Company Number: PHHO2019NL005715

PATIENT
  Age: 66 Year
  Sex: Female
  Weight: 62 kg

DRUGS (14)
  1. CODEINE [Concomitant]
     Active Substance: CODEINE
     Indication: COUGH
     Dosage: UNK
     Route: 065
     Dates: start: 20181201
  2. PARACETAMOL [Concomitant]
     Active Substance: ACETAMINOPHEN
     Indication: BONE PAIN
     Dosage: UNK
     Route: 065
     Dates: start: 20190306
  3. ACZ885 [Suspect]
     Active Substance: CANAKINUMAB
     Indication: NON-SMALL CELL LUNG CANCER
     Dosage: UNK
     Route: 058
     Dates: start: 20190311
  4. PEMBROLIZUMAB. [Suspect]
     Active Substance: PEMBROLIZUMAB
     Indication: NON-SMALL CELL LUNG CANCER
     Dosage: 200 MG, Q3W
     Route: 042
     Dates: start: 20190311, end: 20190515
  5. ENALAPRIL [Concomitant]
     Active Substance: ENALAPRIL
     Indication: MALIGNANT HYPERTENSION
     Dosage: UNK
     Route: 065
     Dates: start: 19760101
  6. MOVICOLON [Concomitant]
     Active Substance: POLYETHYLENE GLYCOL 3350\POTASSIUM CHLORIDE\SODIUM BICARBONATE\SODIUM CHLORIDE
     Indication: CONSTIPATION
     Dosage: UNK
     Route: 065
     Dates: start: 20190318
  7. OXYCODON [Concomitant]
     Active Substance: OXYCODONE
     Indication: BONE PAIN
     Dosage: UNK
     Route: 065
     Dates: start: 20190311
  8. NO TREATMENT RECEIVED [Suspect]
     Active Substance: UNSPECIFIED INGREDIENT
     Indication: NON-SMALL CELL LUNG CANCER
     Dosage: NO TREATMENT
     Route: 065
  9. IBUPROFEN. [Concomitant]
     Active Substance: IBUPROFEN
     Indication: BONE PAIN
     Dosage: UNK
     Route: 065
     Dates: start: 20190306
  10. COMPARATOR CARBOPLATIN [Suspect]
     Active Substance: CARBOPLATIN
     Indication: NON-SMALL CELL LUNG CANCER
     Dosage: UNK
     Route: 042
     Dates: start: 20190311
  11. OXYNORM [Concomitant]
     Active Substance: OXYCODONE HYDROCHLORIDE
     Indication: BONE PAIN
     Dosage: UNK
     Route: 065
     Dates: start: 20190306
  12. FERROFUMARAAT [Concomitant]
     Indication: ANAEMIA
     Dosage: UNK
     Route: 065
     Dates: start: 20190401
  13. COMPARATOR PACLITAXEL [Suspect]
     Active Substance: PACLITAXEL
     Indication: NON-SMALL CELL LUNG CANCER
     Dosage: UNK
     Route: 042
     Dates: start: 20190311
  14. LEVOTHYROXINE. [Concomitant]
     Active Substance: LEVOTHYROXINE
     Indication: EUTHYROID SICK SYNDROME
     Dosage: UNK
     Route: 065
     Dates: start: 20180101

REACTIONS (1)
  - Diarrhoea [Recovered/Resolved]

NARRATIVE: CASE EVENT DATE: 20190524
